FAERS Safety Report 14678954 (Version 4)
Quarter: 2018Q2

REPORT INFORMATION
  Report Type: Spontaneous
  Country: JP (occurrence: JP)
  Receive Date: 20180326
  Receipt Date: 20180521
  Transmission Date: 20180711
  Serious: Yes (Hospitalization)
  Sender: FDA-Public Use
  Company Number: PHJP2018JP006743

PATIENT
  Age: 65 Year
  Sex: Female

DRUGS (2)
  1. NEORAL [Suspect]
     Active Substance: CYCLOSPORINE
     Indication: APLASTIC ANAEMIA
     Dosage: 200 MG, UNK
     Route: 048
     Dates: start: 20161029
  2. ANTITHYMOCYTE IMMUNOGLOBULIN [Concomitant]
     Active Substance: THYMOCYTE IMMUNE GLOBULIN NOS
     Indication: PRODUCT USED FOR UNKNOWN INDICATION
     Dosage: 2.5MG/KG, UNK
     Route: 065
     Dates: start: 20161107, end: 20161111

REACTIONS (6)
  - Platelet count decreased [Recovered/Resolved]
  - Product use in unapproved indication [Unknown]
  - Visual acuity reduced [Recovered/Resolved]
  - Drug effect incomplete [Unknown]
  - Retinal haemorrhage [Recovered/Resolved]
  - Haemoglobin decreased [Recovered/Resolved]

NARRATIVE: CASE EVENT DATE: 20161029
